FAERS Safety Report 26117300 (Version 1)
Quarter: 2025Q4

REPORT INFORMATION
  Report Type: Spontaneous
  Country: GB (occurrence: GB)
  Receive Date: 20251203
  Receipt Date: 20251203
  Transmission Date: 20260118
  Serious: Yes (Death, Hospitalization, Other)
  Sender: MUNDIPHARMA EDO
  Company Number: GB-NAPPMUNDI-GBR-2025-0130892

PATIENT
  Age: 82 Year
  Sex: Female

DRUGS (1)
  1. REZZAYO [Suspect]
     Active Substance: REZAFUNGIN
     Indication: Product used for unknown indication
     Dosage: 400MG/200MG, ONCE WEEKLY
     Route: 065

REACTIONS (3)
  - Death [Fatal]
  - Compartment syndrome [Unknown]
  - Haematoma [Unknown]

NARRATIVE: CASE EVENT DATE: 20251101
